FAERS Safety Report 9706226 (Version 2)
Quarter: 2013Q4

REPORT INFORMATION
  Report Type: Report from Study
  Country: US (occurrence: US)
  Receive Date: 20131125
  Receipt Date: 20131231
  Transmission Date: 20140711
  Serious: Yes (Hospitalization)
  Sender: FDA-Public Use
  Company Number: US-ROCHE-1308038

PATIENT
  Age: 55 Year
  Sex: Female
  Weight: 121.22 kg

DRUGS (15)
  1. XOLAIR [Suspect]
     Indication: ASTHMA
     Route: 058
     Dates: start: 20111123
  2. PREDNISONE [Concomitant]
     Dosage: 2 TABLETS BY MOUTH DAILY
     Route: 048
  3. PREDNISONE [Concomitant]
     Dosage: 4 PILLS BEDTIME FOR 3 DAYS
     Route: 065
  4. LEVAQUIN [Concomitant]
     Dosage: 1 TABLET BY MOUTH DAILY
     Route: 048
  5. PROZAC [Concomitant]
     Indication: DEPRESSION
     Dosage: 1 CAPSULE BY MOUTH DAILY
     Route: 048
  6. PROZAC [Concomitant]
     Dosage: 1 CAPSULE BY MOUTH DAILY
     Route: 048
  7. CYMBALTA [Concomitant]
     Dosage: 1 CAPSULE BY MOUTH DAILY
     Route: 048
  8. XANAX [Concomitant]
     Indication: ANXIETY
     Dosage: 1 TABLET BY MOUTH DAILY, PRN
     Route: 048
  9. MORPHINE [Concomitant]
     Dosage: 1 TABLET BY MOUTH TWICE A DAY
     Route: 048
  10. CARDIZEM CD [Concomitant]
     Dosage: 1 CAPSULE BY MOUTH DAILY
     Route: 048
  11. ALBUTEROL SULFATE [Concomitant]
     Indication: ASTHMA
     Dosage: 2.5MG/3ML, 1 UNIT INHALE EVERY 4-6 HOURS AS NEEDED
     Route: 065
  12. SINGULAIR [Concomitant]
     Dosage: 1 TABLET BY MOUTH DAILY
     Route: 048
  13. VENTOLIN HFA [Concomitant]
     Indication: ASTHMA
     Dosage: 90 MCG, 2 PUFFS INHALE EVERY 4-6 HOURS AS NEEDED
     Route: 065
  14. DULERA [Concomitant]
     Dosage: 200MCG-5MCG INHALATION, 2 PUFFS INHALE TWICE A DAY
     Route: 065
  15. NEURONTIN (UNITED STATES) [Concomitant]
     Route: 048

REACTIONS (17)
  - Chest pain [Unknown]
  - Occult blood [Unknown]
  - Somnolence [Unknown]
  - Feeling cold [Unknown]
  - Chills [Unknown]
  - Upper respiratory tract congestion [Unknown]
  - Pain [Unknown]
  - Dyspnoea [Unknown]
  - Malaise [Unknown]
  - Lethargy [Unknown]
  - Dyspnoea [Recovered/Resolved]
  - Cough [Recovered/Resolved]
  - Wheezing [Unknown]
  - Pain [Unknown]
  - Dizziness [Unknown]
  - Fatigue [Recovered/Resolved]
  - Breast pain [Unknown]
